FAERS Safety Report 8852076 (Version 1)
Quarter: 2012Q4

REPORT INFORMATION
  Report Type: 
  Country: FR (occurrence: FR)
  Receive Date: 20121022
  Receipt Date: 20121022
  Transmission Date: 20130627
  Serious: Yes (Hospitalization)
  Sender: FDA-Public Use
  Company Number: FR-ASTRAZENECA-2012SE77584

PATIENT
  Age: 32236 Day
  Sex: Male

DRUGS (9)
  1. INEXIUM [Suspect]
     Route: 048
     Dates: end: 20120719
  2. DUOPLAVIN [Suspect]
     Route: 048
     Dates: start: 201206, end: 20120719
  3. ADANCOR [Concomitant]
     Route: 048
  4. CARDENSIEL [Concomitant]
     Route: 048
  5. HEMIGOXINE [Concomitant]
     Route: 048
  6. DIFFU K [Concomitant]
     Route: 048
  7. LASILIX [Concomitant]
     Route: 048
  8. TAREG [Concomitant]
     Route: 048
  9. NATISPRAY [Concomitant]
     Route: 055

REACTIONS (1)
  - Neutropenia [Recovered/Resolved]
